FAERS Safety Report 8799668 (Version 1)
Quarter: 2012Q4

REPORT INFORMATION
  Report Type: 
  Country: US (occurrence: US)
  Receive Date: 20120919
  Receipt Date: 20120919
  Transmission Date: 20130627
  Serious: Yes (Hospitalization, Other)
  Sender: FDA-Public Use
  Company Number: US-009507513-1209USA005752

PATIENT

DRUGS (6)
  1. SAPHRIS [Suspect]
     Dosage: 5 mg, in the morning and 20 mg at bed time
     Route: 060
  2. CHANTIX [Suspect]
     Dosage: 0.5 mg, bid
     Route: 048
  3. CHANTIX [Suspect]
     Dosage: 1 mg, bid
     Route: 048
  4. COZAAR [Concomitant]
     Dosage: 100 mg, qd
  5. OMEPRAZOLE [Concomitant]
  6. DEPAKOTE [Concomitant]
     Dosage: 3000 mg, qd

REACTIONS (9)
  - Paranoia [Unknown]
  - Feeling abnormal [Unknown]
  - Depression [Unknown]
  - Emotional disorder [Unknown]
  - Mood altered [Unknown]
  - Confusional state [Unknown]
  - Insomnia [Unknown]
  - Mood swings [Unknown]
  - Restlessness [Unknown]
